FAERS Safety Report 5531059-6 (Version None)
Quarter: 2007Q4

REPORT INFORMATION
  Report Type: 
  Country: None (occurrence: None)
  Receive Date: 20071130
  Receipt Date: 20071119
  Transmission Date: 20080405
  Serious: Yes (Other)
  Sender: FDA-Public Use
  Company Number: GB-PFIZER INC-2007098089

PATIENT
  Age: 57 Year
  Sex: Male
  Weight: 57 kg

DRUGS (4)
  1. CHAMPIX [Suspect]
     Indication: SMOKING CESSATION THERAPY
     Route: 048
     Dates: start: 20071016, end: 20071017
  2. BECLOMETHASONE DIPROPIONATE [Concomitant]
  3. ALBUTEROL [Concomitant]
  4. TIOTROPIUM BROMIDE [Concomitant]

REACTIONS (3)
  - CRUSH INJURY [None]
  - HAND FRACTURE [None]
  - PSYCHOMOTOR SKILLS IMPAIRED [None]
